FAERS Safety Report 8621972-5 (Version None)
Quarter: 2012Q3

REPORT INFORMATION
  Report Type: 
  Country: None (occurrence: None)
  Receive Date: 20120823
  Receipt Date: 20120823
  Transmission Date: 20120928
  Serious: Yes (Hospitalization)
  Sender: FDA-Public Use
  Company Number: None

PATIENT
  Sex: Male
  Weight: 90 kg

DRUGS (2)
  1. DAUNORUBICIN HCL [Suspect]
     Dosage: 570 MG
     Dates: end: 20120806
  2. CYTARABINE [Suspect]
     Dosage: 1470 MG
     Dates: start: 20120810

REACTIONS (4)
  - DYSPNOEA [None]
  - PYREXIA [None]
  - ATRIAL FIBRILLATION [None]
  - TACHYCARDIA [None]
